FAERS Safety Report 19772284 (Version 1)
Quarter: 2021Q3

REPORT INFORMATION
  Report Type: Spontaneous
  Country: US (occurrence: US)
  Receive Date: 20210831
  Receipt Date: 20210831
  Transmission Date: 20211014
  Serious: Yes (Other)
  Sender: FDA-Public Use
  Company Number: NVSC2021US197265

PATIENT
  Age: 35 Year
  Sex: Female

DRUGS (3)
  1. BEVACIZUMAB. [Suspect]
     Active Substance: BEVACIZUMAB
     Indication: MACULAR DYSTROPHY CONGENITAL
     Dosage: UNK
     Route: 050
  2. RANIBIZUMAB. [Suspect]
     Active Substance: RANIBIZUMAB
     Indication: MACULAR DYSTROPHY CONGENITAL
     Dosage: UNK
     Route: 050
  3. TRIAMCINOLONE [Suspect]
     Active Substance: TRIAMCINOLONE
     Indication: MACULAR DYSTROPHY CONGENITAL
     Dosage: 4 MG, UNKNOWN
     Route: 050

REACTIONS (3)
  - Secretion discharge [Unknown]
  - Haemorrhage [Unknown]
  - Off label use [Unknown]
